FAERS Safety Report 6142026-6 (Version None)
Quarter: 2009Q2

REPORT INFORMATION
  Report Type: 
  Country: None (occurrence: None)
  Receive Date: 20090402
  Receipt Date: 20090325
  Transmission Date: 20091009
  Serious: Yes (Death)
  Sender: FDA-Public Use
  Company Number: BO-PFIZER INC-2009189640

PATIENT

DRUGS (1)
  1. CELECOXIB [Suspect]

REACTIONS (1)
  - DEATH [None]
